FAERS Safety Report 11309979 (Version 2)
Quarter: 2015Q3

REPORT INFORMATION
  Report Type: Spontaneous
  Country: US (occurrence: US)
  Receive Date: 20150724
  Receipt Date: 20150727
  Transmission Date: 20151125
  Serious: Yes (Hospitalization, Other)
  Sender: FDA-Public Use
  Company Number: US-PFIZER INC-2015237897

PATIENT
  Age: 36 Year
  Sex: Male

DRUGS (1)
  1. PHENYTOIN. [Suspect]
     Active Substance: PHENYTOIN
     Indication: POST-TRAUMATIC EPILEPSY
     Dosage: 500 MG/DAY

REACTIONS (3)
  - Drug hypersensitivity [Unknown]
  - Hypogammaglobulinaemia [Unknown]
  - Acquired immunodeficiency syndrome [Unknown]
